FAERS Safety Report 9055992 (Version 1)
Quarter: 2013Q1

REPORT INFORMATION
  Report Type: Spontaneous
  Country: US (occurrence: US)
  Receive Date: 20130205
  Receipt Date: 20130205
  Transmission Date: 20140127
  Serious: Yes (Hospitalization, Other)
  Sender: FDA-Public Use
  Company Number: US-JNJFOC-20130113698

PATIENT
  Age: 69 None
  Sex: Male

DRUGS (6)
  1. REMICADE [Suspect]
     Indication: CROHN^S DISEASE
     Dosage: (INCREASED TO UNSPECIFIED DOSE) EVERY 6-7 WEEKS
     Route: 042
     Dates: start: 201212
  2. REMICADE [Suspect]
     Indication: CROHN^S DISEASE
     Dosage: EVERY 6-7 WEEKS
     Route: 042
     Dates: start: 2006, end: 201212
  3. REMICADE [Suspect]
     Indication: RHEUMATOID ARTHRITIS
     Dosage: (INCREASED TO UNSPECIFIED DOSE) EVERY 6-7 WEEKS
     Route: 042
     Dates: start: 201212
  4. REMICADE [Suspect]
     Indication: RHEUMATOID ARTHRITIS
     Dosage: EVERY 6-7 WEEKS
     Route: 042
     Dates: start: 2006, end: 201212
  5. TRAZODONE [Suspect]
     Indication: SLEEP DISORDER THERAPY
     Route: 065
     Dates: start: 2012, end: 20121224
  6. ALPRAZOLAM [Concomitant]
     Indication: ANXIETY
     Dosage: 3-4 TIMES A DAY
     Route: 048
     Dates: start: 1993

REACTIONS (11)
  - Chronic obstructive pulmonary disease [Not Recovered/Not Resolved]
  - Muscle twitching [Unknown]
  - Tremor [Unknown]
  - Dyskinesia [Unknown]
  - Vomiting [Unknown]
  - Diarrhoea [Unknown]
  - Insomnia [Unknown]
  - Therapeutic response decreased [Unknown]
  - Stress [Not Recovered/Not Resolved]
  - Fatigue [Unknown]
  - Malaise [Not Recovered/Not Resolved]
